FAERS Safety Report 21530868 (Version 1)
Quarter: 2022Q4

REPORT INFORMATION
  Report Type: Spontaneous
  Country: US (occurrence: None)
  Receive Date: 20221028
  Receipt Date: 20221028
  Transmission Date: 20230113
  Serious: Yes (Other)
  Sender: FDA-Public Use
  Company Number: None

PATIENT
  Age: 69 Year
  Sex: Male

DRUGS (1)
  1. BLINATUMOMAB [Suspect]
     Active Substance: BLINATUMOMAB
     Dosage: FREQUENCY : PER HOUR;?
     Route: 042
     Dates: start: 20220930, end: 20221013

REACTIONS (3)
  - Immune effector cell-associated neurotoxicity syndrome [None]
  - Aphasia [None]
  - Encephalopathy [None]

NARRATIVE: CASE EVENT DATE: 20221012
